FAERS Safety Report 9708202 (Version 3)
Quarter: 2014Q4

REPORT INFORMATION
  Report Type: Spontaneous
  Country: US (occurrence: None)
  Receive Date: 20131121
  Receipt Date: 20141120
  Transmission Date: 20150529
  Serious: Yes (Hospitalization)
  Sender: FDA-Public Use
  Company Number: 2013-US-003343

PATIENT
  Age: 44 Year
  Sex: Male

DRUGS (1)
  1. XYREM [Suspect]
     Active Substance: SODIUM OXYBATE
     Indication: NARCOLEPSY
     Dosage: 2.25 G, BID, ORAL
     Route: 048
     Dates: start: 201201, end: 2012

REACTIONS (3)
  - Haemorrhoid operation [None]
  - Cholecystectomy [None]
  - Fistula repair [None]

NARRATIVE: CASE EVENT DATE: 20131101
